FAERS Safety Report 8559409-7 (Version None)
Quarter: 2012Q3

REPORT INFORMATION
  Report Type: 
  Country: None (occurrence: None)
  Receive Date: 20120802
  Receipt Date: 20120724
  Transmission Date: 20120928
  Serious: Yes (Hospitalization, Other)
  Sender: FDA-Public Use
  Company Number: US-BAYER-201022365NA

PATIENT
  Age: 36 Year
  Sex: Female
  Weight: 133.79 kg

DRUGS (26)
  1. ACETAMINOPHEN AND TRAMADOL HCL [Concomitant]
     Indication: PROCEDURAL PAIN
  2. ULTRACET [Concomitant]
  3. OPIUM ALKALOIDS AND DERIVATIVES [Concomitant]
     Dosage: UNK
     Dates: start: 20071011
  4. METHYLPREDNISOLONE [Concomitant]
     Dosage: 4 MG, UNK
     Route: 048
     Dates: start: 20071004
  5. HYDROCHLOROTHIAZIDE [Concomitant]
     Indication: HYPERTENSION
     Dosage: 25 MG, UNK
     Route: 048
     Dates: start: 20060421, end: 20090827
  6. TYLENOL (CAPLET) [Concomitant]
     Route: 048
  7. XYZAL [Concomitant]
     Dosage: 5 MG, UNK
     Route: 048
     Dates: start: 20071022
  8. EMEND [Concomitant]
     Dosage: 40 MG, UNK
     Route: 048
     Dates: start: 20071022
  9. PROPOXYPHENE HCL [Concomitant]
     Indication: PAIN
  10. MEDENT LD [Concomitant]
     Indication: SINUSITIS
     Dosage: 1 TWICE A DAY TIMES 5 DAYS
     Route: 048
     Dates: start: 20071004
  11. AMOXICILLIN AND CLAVULANATE POTASSIUM [Concomitant]
     Dosage: 875 MG, UNK
     Route: 048
     Dates: start: 20071004
  12. AUGMENTIN '500' [Concomitant]
     Dosage: UNK
     Dates: start: 20071106
  13. LEVOCETIRIZINE DIHYDROCHLORIDE [Concomitant]
     Indication: MULTIPLE ALLERGIES
  14. FLUCONAZOLE [Concomitant]
     Dosage: 150 MG, UNK
     Route: 048
     Dates: start: 20070719, end: 20070918
  15. LEVAQUIN [Concomitant]
     Dosage: 750 MG, UNK
     Route: 048
     Dates: start: 20071022
  16. SINGULAIR [Concomitant]
     Dosage: 10 MG, UNK
     Route: 048
     Dates: start: 20071022
  17. YASMIN [Suspect]
     Indication: MENORRHAGIA
  18. IBUPROFEN [Concomitant]
     Dosage: UNK
     Dates: start: 20050923, end: 20090615
  19. NASONEX [Concomitant]
     Indication: SINUSITIS
     Dosage: 2 SQUIRTS DAILY
     Route: 045
     Dates: start: 20071004
  20. LIDOCAINE HCL VISCOUS [Concomitant]
     Dosage: 2 %UNK, UNK
     Route: 048
     Dates: start: 20071111
  21. ACETAMINOPHEN AND TRAMADOL HCL [Concomitant]
     Dosage: 37.5MG/325MG
     Route: 048
     Dates: start: 20071119
  22. YASMIN [Suspect]
     Indication: ORAL CONTRACEPTION
     Route: 048
     Dates: start: 20020801, end: 20071201
  23. AMOXICILLIN [Concomitant]
     Dosage: UNK
  24. METHOCARBAMOL [Concomitant]
     Indication: MUSCLE RELAXANT THERAPY
     Dosage: UNK
     Dates: start: 20071101
  25. ZYRTEC [Concomitant]
     Indication: SINUSITIS
     Dosage: DAILY
     Route: 048
     Dates: start: 20050923, end: 20071004
  26. OXYCODONE HCL AND ACETAMINOPHEN [Concomitant]
     Dosage: 5MG/500MG
     Route: 048
     Dates: start: 20071106

REACTIONS (10)
  - DYSPNOEA [None]
  - PULMONARY EMBOLISM [None]
  - PAIN IN EXTREMITY [None]
  - ENDOMETRIAL CANCER [None]
  - UTERINE CANCER [None]
  - OVARIAN CANCER [None]
  - OEDEMA PERIPHERAL [None]
  - VASCULAR NEOPLASM [None]
  - DEEP VEIN THROMBOSIS [None]
  - UTERINE HAEMORRHAGE [None]
